FAERS Safety Report 17216321 (Version 1)
Quarter: 2019Q4

REPORT INFORMATION
  Report Type: Spontaneous
  Country: US (occurrence: US)
  Receive Date: 20191230
  Receipt Date: 20191230
  Transmission Date: 20200122
  Serious: No
  Sender: FDA-Public Use
  Company Number: US-JNJFOC-20191234396

PATIENT
  Sex: Female
  Weight: 54.48 kg

DRUGS (3)
  1. BABY ASPIRIN [Concomitant]
     Active Substance: ASPIRIN
  2. XARELTO [Suspect]
     Active Substance: RIVAROXABAN
     Indication: INTRACARDIAC THROMBUS
     Dosage: ONCE DAILY IN EVENING
     Route: 048
     Dates: start: 201910
  3. LOSARTAN. [Concomitant]
     Active Substance: LOSARTAN
     Indication: HYPOTENSION
     Route: 065

REACTIONS (3)
  - Swelling face [Recovered/Resolved]
  - Product dose omission [Unknown]
  - Pallor [Recovered/Resolved]

NARRATIVE: CASE EVENT DATE: 2019
